FAERS Safety Report 7345356-5 (Version None)
Quarter: 2011Q1

REPORT INFORMATION
  Report Type: 
  Country: None (occurrence: None)
  Receive Date: 20110310
  Receipt Date: 20110301
  Transmission Date: 20110831
  Serious: Yes (Death, Hospitalization, Other)
  Sender: FDA-Public Use
  Company Number: JP-CELGENEUS-087-21880-11012561

PATIENT
  Sex: Female
  Weight: 38 kg

DRUGS (10)
  1. LENADEX [Suspect]
     Dosage: 40 MILLIGRAM
     Route: 048
     Dates: start: 20101211, end: 20101222
  2. ASPIRIN [Concomitant]
     Indication: PROPHYLAXIS
     Dosage: 100 MILLIGRAM
     Route: 048
     Dates: start: 20101105, end: 20101224
  3. LENADEX [Suspect]
     Indication: MULTIPLE MYELOMA
     Dosage: 40 MILLIGRAM
     Route: 048
     Dates: start: 20101105, end: 20101124
  4. MEVALOTIN [Concomitant]
     Dosage: 10 MILLIGRAM
     Route: 048
     Dates: start: 20101105, end: 20101224
  5. REVLIMID [Suspect]
     Dosage: 25 MILLIGRAM
     Route: 048
     Dates: start: 20101211, end: 20101224
  6. REVLIMID [Suspect]
     Indication: MULTIPLE MYELOMA
     Dosage: 25 MILLIGRAM
     Route: 048
     Dates: start: 20101105, end: 20101125
  7. METHYCOOL [Concomitant]
     Dosage: 1500 MICROGRAM
     Route: 048
     Dates: start: 20101211, end: 20101224
  8. METHYCOBAL [Concomitant]
     Dosage: 1500 MICROGRAM
     Route: 048
     Dates: start: 20101105, end: 20101210
  9. TENORMIN [Concomitant]
     Indication: HYPERTENSION
     Dosage: 50 MILLIGRAM
     Route: 048
     Dates: start: 20101105, end: 20101224
  10. MYSLEE [Concomitant]
     Dosage: 7.5 MILLIGRAM
     Route: 048
     Dates: start: 20101105, end: 20101224

REACTIONS (4)
  - NEUTROPENIA [None]
  - NEUTROPHIL COUNT DECREASED [None]
  - BILIARY TRACT INFECTION [None]
  - THROMBOCYTOPENIA [None]
